FAERS Safety Report 15988168 (Version 3)
Quarter: 2019Q1

REPORT INFORMATION
  Report Type: Spontaneous
  Country: US (occurrence: US)
  Receive Date: 20190221
  Receipt Date: 20190330
  Transmission Date: 20190418
  Serious: No
  Sender: FDA-Public Use
  Company Number: US-GLAXOSMITHKLINE-US2019027215

PATIENT
  Age: 57 Year
  Sex: Female

DRUGS (1)
  1. EXCEDRIN MIGRAINE [Suspect]
     Active Substance: ACETAMINOPHEN\ASPIRIN\CAFFEINE
     Indication: MIGRAINE
     Dosage: 2 UNK, QD
     Route: 048
     Dates: start: 20190210, end: 20190210

REACTIONS (9)
  - Dyspepsia [Unknown]
  - Abdominal pain upper [Unknown]
  - Chest pain [Unknown]
  - Feeling abnormal [Unknown]
  - Malaise [Unknown]
  - Constipation [Unknown]
  - Dyspepsia [Unknown]
  - Burning sensation [Unknown]
  - Nausea [Unknown]

NARRATIVE: CASE EVENT DATE: 20190211
